FAERS Safety Report 9384618 (Version 2)
Quarter: 2013Q3

REPORT INFORMATION
  Report Type: Spontaneous
  Country: FR (occurrence: None)
  Receive Date: 20130628
  Receipt Date: 20130717
  Transmission Date: 20140515
  Serious: Yes (Life-Threatening)
  Sender: FDA-Public Use
  Company Number: SYM-2013-04953

PATIENT
  Age: 31 Year
  Sex: Male

DRUGS (6)
  1. FLAGYL [Suspect]
     Indication: PRODUCT USED FOR UNKNOWN INDICATION
     Route: 048
     Dates: start: 20130423, end: 20130612
  2. CLOPIXOL [Suspect]
     Indication: SCHIZOPHRENIA
     Route: 048
  3. PARKINANE [Suspect]
     Indication: SCHIZOPHRENIA
     Route: 048
  4. ZYVOXID [Suspect]
     Indication: LUNG DISORDER
     Route: 048
     Dates: start: 20130429, end: 20130522
  5. TAZOCILLINE [Suspect]
     Indication: PRODUCT USED FOR UNKNOWN INDICATION
     Dosage: 4 GM, 3 IN 1 D, INTRAVENOUS (NOT OTHERWISE SPECIFIED)
     Route: 042
     Dates: start: 20130503, end: 20130523
  6. TAZOCILLINE [Suspect]
     Indication: LUNG DISORDER
     Dosage: 4 GM, 3 IN 1 D, INTRAVENOUS (NOT OTHERWISE SPECIFIED)
     Route: 042
     Dates: start: 20130503, end: 20130523

REACTIONS (1)
  - Febrile neutropenia [None]
